FAERS Safety Report 6149328-8 (Version None)
Quarter: 2009Q2

REPORT INFORMATION
  Report Type: 
  Country: None (occurrence: None)
  Receive Date: 20090409
  Receipt Date: 20090402
  Transmission Date: 20091009
  Serious: Yes (Other)
  Sender: FDA-Public Use
  Company Number: FR-ASTRAZENECA-2009CG00138

PATIENT
  Age: 39 Year
  Sex: Male
  Weight: 85 kg

DRUGS (3)
  1. NEXIUM [Suspect]
     Indication: ABDOMINAL PAIN UPPER
     Route: 048
     Dates: start: 20090112, end: 20090112
  2. NEXIUM [Suspect]
     Route: 048
     Dates: start: 20090112, end: 20090112
  3. LAMISIL [Concomitant]
     Indication: ONYCHOMYCOSIS
     Dates: start: 20080915, end: 20090130

REACTIONS (1)
  - HYPERSENSITIVITY [None]
